FAERS Safety Report 16706836 (Version 2)
Quarter: 2020Q2

REPORT INFORMATION
  Report Type: Spontaneous
  Country: US (occurrence: US)
  Receive Date: 20190815
  Receipt Date: 20200519
  Transmission Date: 20200713
  Serious: Yes (Other)
  Sender: FDA-Public Use
  Company Number: US-PFIZER INC-2019344114

PATIENT
  Age: 70 Year
  Sex: Male
  Weight: 84 kg

DRUGS (4)
  1. HEPARIN SODIUM. [Suspect]
     Active Substance: HEPARIN SODIUM
     Indication: COAGULOPATHY
     Dosage: 8000 UNITS (95 UNITS/KG)
     Route: 040
  2. ANDEXXA [Interacting]
     Active Substance: ANDEXANET ALFA
     Indication: ANTICOAGULANT THERAPY
     Dosage: 400 MG, UNK 13 MINUTES (AT A RATE OF 30 MG/MIN)
     Route: 040
  3. ANDEXXA [Interacting]
     Active Substance: ANDEXANET ALFA
     Dosage: 4 MG, UNK AT A RATE OF 4 MG/MIN FOR APPROXIMATELY 100 MINUTES
     Route: 040
  4. HEPARIN SODIUM. [Interacting]
     Active Substance: HEPARIN SODIUM
     Dosage: 6000 UNITS (71 UNITS/KG)
     Route: 040

REACTIONS (2)
  - Drug interaction [Unknown]
  - Drug ineffective [Unknown]
